FAERS Safety Report 26095850 (Version 1)
Quarter: 2025Q4

REPORT INFORMATION
  Report Type: Spontaneous
  Country: US (occurrence: US)
  Receive Date: 20251127
  Receipt Date: 20251127
  Transmission Date: 20260118
  Serious: Yes (Death, Hospitalization, Other)
  Sender: AMGEN
  Company Number: US-AMGEN-USASP2025231221

PATIENT

DRUGS (1)
  1. RITUXIMAB [Suspect]
     Active Substance: RITUXIMAB
     Indication: Diffuse large B-cell lymphoma
     Dosage: UNK
     Route: 065

REACTIONS (22)
  - Death [Fatal]
  - Unevaluable event [Unknown]
  - Neutropenia [Unknown]
  - Thrombocytopenia [Unknown]
  - Neurotoxicity [Unknown]
  - Septic shock [Unknown]
  - Pneumonia [Unknown]
  - Cytokine release syndrome [Unknown]
  - Immune effector cell-associated neurotoxicity syndrome [Unknown]
  - End stage renal disease [Unknown]
  - Haemodialysis [Unknown]
  - Myelodysplastic syndrome [Unknown]
  - Acute myeloid leukaemia [Unknown]
  - Systemic candida [Unknown]
  - Hypogammaglobulinaemia [Unknown]
  - Aspergillus infection [Unknown]
  - Anaemia [Unknown]
  - Fatigue [Unknown]
  - Cytomegalovirus infection [Unknown]
  - Interleukin level increased [Unknown]
  - C-reactive protein increased [Unknown]
  - Blood lactate dehydrogenase increased [Unknown]
